FAERS Safety Report 5448647-8 (Version None)
Quarter: 2007Q3

REPORT INFORMATION
  Report Type: 
  Country: None (occurrence: None)
  Receive Date: 20070907
  Receipt Date: 20070907
  Transmission Date: 20080115
  Serious: Yes (Life-Threatening)
  Sender: FDA-Public Use
  Company Number: None

PATIENT
  Age: 33 Year
  Sex: Female
  Weight: 58.9676 kg

DRUGS (1)
  1. DEPAKOTE [Suspect]
     Dosage: 2 X DAILY PO
     Route: 048
     Dates: start: 19870515, end: 19981231

REACTIONS (2)
  - HEPATOTOXICITY [None]
  - WEIGHT INCREASED [None]
